FAERS Safety Report 5471762-X (Version None)
Quarter: 2007Q3

REPORT INFORMATION
  Report Type: 
  Country: None (occurrence: None)
  Receive Date: 20070928
  Receipt Date: 20070510
  Transmission Date: 20080115
  Serious: No
  Sender: FDA-Public Use
  Company Number: US-BRISTOL-MYERS SQUIBB COMPANY-13775572

PATIENT
  Age: 54 Year
  Sex: Male

DRUGS (4)
  1. DEFINITY [Suspect]
     Indication: STRESS ECHOCARDIOGRAM
     Route: 042
     Dates: start: 20070510, end: 20070510
  2. ATENOLOL [Concomitant]
  3. NORCO [Concomitant]
  4. FLEXERIL [Concomitant]

REACTIONS (2)
  - DYSPNOEA [None]
  - URTICARIA [None]
